FAERS Safety Report 5473499-X (Version None)
Quarter: 2007Q3

REPORT INFORMATION
  Report Type: 
  Country: None (occurrence: None)
  Receive Date: 20070830
  Receipt Date: 20060726
  Transmission Date: 20080115
  Serious: Yes (Death)
  Sender: FDA-Public Use
  Company Number: KADN20060028

PATIENT
  Age: 26 Year
  Sex: Male

DRUGS (1)
  1. MORPHINE [Suspect]
     Dates: start: 20021201, end: 20021201

REACTIONS (2)
  - COMPLETED SUICIDE [None]
  - OVERDOSE [None]
